FAERS Safety Report 17157149 (Version 2)
Quarter: 2019Q4

REPORT INFORMATION
  Report Type: Report from Study
  Country: IT (occurrence: IT)
  Receive Date: 20191216
  Receipt Date: 20191231
  Transmission Date: 20200122
  Serious: Yes (Hospitalization, Other)
  Sender: FDA-Public Use
  Company Number: IT-ACCORD-165282

PATIENT
  Age: 56 Year
  Sex: Female

DRUGS (5)
  1. DOXORUBICIN [Suspect]
     Active Substance: DOXORUBICIN
     Indication: NEUROFIBROSARCOMA
     Dosage: CYCLE
     Dates: start: 201607
  2. IFOSFAMIDE. [Suspect]
     Active Substance: IFOSFAMIDE
     Indication: NEUROFIBROSARCOMA
     Dosage: CYCLE
     Dates: start: 201607
  3. ZOLEDRONIC ACID [Suspect]
     Active Substance: ZOLEDRONIC ACID
     Indication: NEUROFIBROSARCOMA
     Dosage: CYCLE
  4. MESNA. [Suspect]
     Active Substance: MESNA
     Indication: NEUROFIBROSARCOMA
     Dosage: CYCLE
     Dates: start: 201607
  5. DACARBAZINE. [Suspect]
     Active Substance: DACARBAZINE
     Indication: NEUROFIBROSARCOMA
     Dosage: CYCLE
     Dates: start: 201607

REACTIONS (3)
  - Off label use [Unknown]
  - Device related infection [Recovered/Resolved]
  - Bacteraemia [Recovered/Resolved]

NARRATIVE: CASE EVENT DATE: 20170415
